FAERS Safety Report 5895494-9 (Version None)
Quarter: 2008Q3

REPORT INFORMATION
  Report Type: 
  Country: None (occurrence: None)
  Receive Date: 20080923
  Receipt Date: 20080923
  Transmission Date: 20090109
  Serious: Yes (Life-Threatening)
  Sender: FDA-Public Use
  Company Number: None

PATIENT
  Sex: Female
  Weight: 56.6996 kg

DRUGS (1)
  1. AMITIZA [Suspect]
     Indication: INFREQUENT BOWEL MOVEMENTS
     Dosage: 24MCG  2 PER DAY PO
     Route: 048
     Dates: start: 20080916, end: 20080918

REACTIONS (6)
  - DIZZINESS [None]
  - DYSPNOEA [None]
  - HEART RATE IRREGULAR [None]
  - RASH [None]
  - SYNCOPE [None]
  - THROAT TIGHTNESS [None]
